FAERS Safety Report 6469342-2 (Version None)
Quarter: 2009Q4

REPORT INFORMATION
  Report Type: 
  Country: None (occurrence: None)
  Receive Date: 20091202
  Receipt Date: 20091202
  Transmission Date: 20100525
  Serious: Yes (Hospitalization)
  Sender: FDA-Public Use
  Company Number: None

PATIENT
  Sex: Male
  Weight: 84.8226 kg

DRUGS (2)
  1. DIVALPROEX SODIUM [Suspect]
     Indication: BIPOLAR I DISORDER
     Dosage: 500MG TWO AM/THREE HS PO
     Route: 048
     Dates: start: 20090602, end: 20091123
  2. DIVALPROEX SODIUM [Suspect]
     Indication: MANIA
     Dosage: 500MG TWO AM/THREE HS PO
     Route: 048
     Dates: start: 20090602, end: 20091123

REACTIONS (6)
  - AFFECT LABILITY [None]
  - AGGRESSION [None]
  - DRUG INEFFECTIVE [None]
  - MOOD ALTERED [None]
  - PHYSICAL ASSAULT [None]
  - PRODUCT SUBSTITUTION ISSUE [None]
